FAERS Safety Report 15644361 (Version 3)
Quarter: 2019Q1

REPORT INFORMATION
  Report Type: Spontaneous
  Country: TW (occurrence: TW)
  Receive Date: 20181121
  Receipt Date: 20190109
  Transmission Date: 20190417
  Serious: Yes (Hospitalization)
  Sender: FDA-Public Use
  Company Number: TW-PFIZER INC-2018441008

PATIENT
  Age: 49 Year
  Sex: Male

DRUGS (1)
  1. SUTENT [Suspect]
     Active Substance: SUNITINIB MALATE
     Indication: RENAL CELL CARCINOMA
     Dosage: 12.5 MG, 2X/DAY
     Route: 048
     Dates: start: 20181012, end: 201811

REACTIONS (3)
  - Neoplasm progression [Unknown]
  - Mouth ulceration [Not Recovered/Not Resolved]
  - Incision site pain [Not Recovered/Not Resolved]

NARRATIVE: CASE EVENT DATE: 201811
